FAERS Safety Report 18172089 (Version 1)
Quarter: 2020Q3

REPORT INFORMATION
  Report Type: Report from Study
  Country: CA (occurrence: CA)
  Receive Date: 20200820
  Receipt Date: 20200820
  Transmission Date: 20201103
  Serious: Yes (Other)
  Sender: FDA-Public Use
  Company Number: CA-OCTA-ONORM02920CA

PATIENT
  Sex: Female
  Weight: 93 kg

DRUGS (1)
  1. CUTAQUIG [Suspect]
     Active Substance: HUMAN IMMUNOGLOBULIN G
     Indication: PRODUCT USED FOR UNKNOWN INDICATION
     Route: 058
     Dates: start: 2019

REACTIONS (2)
  - Immunoglobulins decreased [Unknown]
  - Meningitis aseptic [Unknown]
